FAERS Safety Report 10926263 (Version 1)
Quarter: 2015Q1

REPORT INFORMATION
  Report Type: Spontaneous
  Country: US (occurrence: None)
  Receive Date: 20150317
  Receipt Date: 20150317
  Transmission Date: 20150721
  Serious: Yes (Other)
  Sender: FDA-Public Use
  Company Number: None

PATIENT
  Age: 93 Year
  Sex: Male

DRUGS (2)
  1. CHLORPROMAZINE 25MG [Suspect]
     Active Substance: CHLORPROMAZINE
     Indication: CARDIAC FAILURE
     Route: 054
     Dates: start: 20150314
  2. CHLORPROMAZINE 25MG [Suspect]
     Active Substance: CHLORPROMAZINE
     Indication: RENAL DISORDER
     Route: 054
     Dates: start: 20150314

REACTIONS (5)
  - Disturbance in attention [None]
  - Hypophagia [None]
  - Malaise [None]
  - Hallucination [None]
  - Agitation [None]

NARRATIVE: CASE EVENT DATE: 20150314
